FAERS Safety Report 18554646 (Version 1)
Quarter: 2020Q4

REPORT INFORMATION
  Report Type: Spontaneous
  Country: US (occurrence: US)
  Receive Date: 20201127
  Receipt Date: 20201127
  Transmission Date: 20210114
  Serious: No
  Sender: FDA-Public Use
  Company Number: US-BIOGEN-2020BI00907911

PATIENT
  Age: 38 Year
  Sex: Female

DRUGS (6)
  1. TECFIDERA [Suspect]
     Active Substance: DIMETHYL FUMARATE
     Dosage: INCREASED DOSAGE OF TECFIDERA.
     Route: 065
  2. PEPCID [Concomitant]
     Active Substance: FAMOTIDINE
     Indication: INFLAMMATION
     Route: 065
  3. CLARITIN [Concomitant]
     Active Substance: LORATADINE
     Indication: INFLAMMATION
     Route: 065
  4. TECFIDERA [Suspect]
     Active Substance: DIMETHYL FUMARATE
     Indication: MULTIPLE SCLEROSIS
     Dosage: STARTING DOSE
     Route: 048
     Dates: start: 20200804, end: 20200812
  5. TECFIDERA [Suspect]
     Active Substance: DIMETHYL FUMARATE
     Route: 065
     Dates: start: 20200803, end: 20200811
  6. LOW DOSE NALTREXONE [Concomitant]
     Active Substance: NALTREXONE
     Route: 065

REACTIONS (10)
  - Nervousness [Unknown]
  - Hyperhidrosis [Unknown]
  - Urticaria [Recovered/Resolved]
  - Weight decreased [Unknown]
  - Malaise [Unknown]
  - Mobility decreased [Unknown]
  - Hot flush [Unknown]
  - Vomiting [Recovered/Resolved]
  - Anxiety [Unknown]
  - Fatigue [Unknown]

NARRATIVE: CASE EVENT DATE: 20200812
